FAERS Safety Report 10151059 (Version 1)
Quarter: 2014Q2

REPORT INFORMATION
  Report Type: Spontaneous
  Country: US (occurrence: US)
  Receive Date: 20140502
  Receipt Date: 20140502
  Transmission Date: 20141212
  Serious: Yes (Congenital Anomaly, Other)
  Sender: FDA-Public Use
  Company Number: US-ABBVIE-14P-163-1230787-00

PATIENT
  Sex: Female

DRUGS (1)
  1. DEPAKOTE [Suspect]
     Indication: MATERNAL EXPOSURE TIMING UNSPECIFIED
     Route: 064

REACTIONS (19)
  - Physical disability [Unknown]
  - Congenital anomaly [Unknown]
  - Foetal exposure during pregnancy [Unknown]
  - Cognitive disorder [Recovering/Resolving]
  - Nervous system disorder [Unknown]
  - Abnormal behaviour [Recovering/Resolving]
  - Hypotonia [Unknown]
  - Muscular weakness [Unknown]
  - Precocious puberty [Unknown]
  - Congenital jaw malformation [Unknown]
  - Tooth malformation [Unknown]
  - Mental impairment [Unknown]
  - Psychomotor skills impaired [Unknown]
  - Mental retardation [Unknown]
  - Activities of daily living impaired [Unknown]
  - Activities of daily living impaired [Unknown]
  - Pain [Unknown]
  - Economic problem [Unknown]
  - Anxiety [Unknown]
